FAERS Safety Report 8470674-7 (Version None)
Quarter: 2012Q2

REPORT INFORMATION
  Report Type: 
  Country: None (occurrence: None)
  Receive Date: 20120627
  Receipt Date: 20120620
  Transmission Date: 20120825
  Serious: Yes (Death, Life-Threatening, Other)
  Sender: FDA-Public Use
  Company Number: JP-PFIZER INC-2012057221

PATIENT
  Age: 67 Year
  Sex: Male
  Weight: 50.6 kg

DRUGS (9)
  1. TEMSIROLIMUS [Suspect]
     Indication: METASTATIC RENAL CELL CARCINOMA
     Dosage: 15 MG, UNK
     Route: 042
     Dates: start: 20111128
  2. POLARAMINE [Concomitant]
     Indication: PROPHYLAXIS
     Dosage: 5 MG, WEEKLY
     Route: 042
     Dates: start: 20111128
  3. FERROUS CITRATE [Concomitant]
     Dosage: UNK
     Route: 048
     Dates: end: 20120117
  4. LASIX [Concomitant]
     Indication: PROPHYLAXIS
     Dosage: 20 MG, 1X/DAY
     Route: 048
     Dates: end: 20120117
  5. FAMOTIDINE [Concomitant]
     Indication: PROPHYLAXIS
     Dosage: 20 MG, 1X/DAY
     Route: 048
     Dates: end: 20120117
  6. TEMSIROLIMUS [Suspect]
     Dosage: 20 MG, WEEKLY
     Route: 042
     Dates: start: 20111205, end: 20111219
  7. TEMSIROLIMUS [Suspect]
     Dosage: 20 MG, WEEKLY
     Dates: start: 20120110
  8. CARVEDILOL [Concomitant]
     Indication: PROPHYLAXIS
     Dosage: UNK
     Route: 048
     Dates: end: 20120117
  9. URSO 250 [Concomitant]
     Indication: PROPHYLAXIS
     Dosage: UNK
     Route: 048
     Dates: end: 20120117

REACTIONS (3)
  - STOMATITIS [None]
  - DEATH [None]
  - PLATELET COUNT DECREASED [None]
